FAERS Safety Report 5130381-5 (Version None)
Quarter: 2006Q4

REPORT INFORMATION
  Report Type: 
  Country: None (occurrence: None)
  Receive Date: 20061019
  Receipt Date: 20061012
  Transmission Date: 20070319
  Serious: Yes (Other)
  Sender: FDA-Public Use
  Company Number: US-BRISTOL-MYERS SQUIBB COMPANY-13539697

PATIENT
  Sex: Male

DRUGS (3)
  1. KENALOG [Suspect]
  2. CEFADROXIL MONOHYDRATE [Suspect]
  3. ROCEPHIN [Suspect]

REACTIONS (1)
  - ANAPHYLACTIC SHOCK [None]
